FAERS Safety Report 24921225 (Version 3)
Quarter: 2025Q1

REPORT INFORMATION
  Report Type: Report from Study
  Country: IN (occurrence: IN)
  Receive Date: 20250204
  Receipt Date: 20250212
  Transmission Date: 20250409
  Serious: Yes (Death, Life-Threatening, Other)
  Sender: ROCHE
  Company Number: IN-ROCHE-10000191907

PATIENT
  Age: 62 Year
  Sex: Male

DRUGS (1)
  1. TECENTRIQ [Suspect]
     Active Substance: ATEZOLIZUMAB
     Indication: Hepatocellular carcinoma
     Route: 042
     Dates: start: 20241024

REACTIONS (15)
  - Gastric infection [Unknown]
  - Abdominal pain upper [Unknown]
  - Asthenia [Unknown]
  - Hypotension [Unknown]
  - Pallor [Unknown]
  - Jaundice [Unknown]
  - Cyanosis [Unknown]
  - Clubbing [Unknown]
  - Oedema peripheral [Unknown]
  - Sepsis [Unknown]
  - Mouth ulceration [Unknown]
  - Rash [Unknown]
  - Neoplasm [Unknown]
  - Jaundice [Unknown]
  - Death [Fatal]

NARRATIVE: CASE EVENT DATE: 20250204
